FAERS Safety Report 4777442-8 (Version None)
Quarter: 2005Q3

REPORT INFORMATION
  Report Type: 
  Country: None (occurrence: None)
  Receive Date: 20050915
  Receipt Date: 20050901
  Transmission Date: 20060218
  Serious: Yes (Other)
  Sender: FDA-Public Use
  Company Number: EM2005-0441

PATIENT
  Age: 54 Year
  Sex: Male
  Weight: 72.6 kg

DRUGS (1)
  1. PROLEUKIN [Suspect]
     Indication: MALIGNANT MELANOMA

REACTIONS (1)
  - WEIGHT DECREASED [None]
